FAERS Safety Report 6153095-1 (Version None)
Quarter: 2009Q2

REPORT INFORMATION
  Report Type: 
  Country: None (occurrence: None)
  Receive Date: 20090409
  Receipt Date: 20090323
  Transmission Date: 20091009
  Serious: Yes (Hospitalization)
  Sender: FDA-Public Use
  Company Number: 2008US000430

PATIENT
  Age: 57 Year
  Sex: Male
  Weight: 72.6 kg

DRUGS (1)
  1. AMEVIVE [Suspect]
     Indication: PSORIASIS
     Dosage: 15 MG, WEEKLY, INTRAMUSCULAR
     Route: 030
     Dates: start: 20050518

REACTIONS (6)
  - ALCOHOL USE [None]
  - ANXIETY [None]
  - CARDIAC FLUTTER [None]
  - CHEST PAIN [None]
  - MUSCLE STRAIN [None]
  - MYOCARDIAL INFARCTION [None]
